FAERS Safety Report 5728999-1 (Version None)
Quarter: 2008Q2

REPORT INFORMATION
  Report Type: 
  Country: None (occurrence: None)
  Receive Date: 20080505
  Receipt Date: 20080505
  Transmission Date: 20081010
  Serious: Yes (Life-Threatening, Other)
  Sender: FDA-Public Use
  Company Number: None

PATIENT
  Age: 61 Year
  Sex: Female
  Weight: 52.1637 kg

DRUGS (2)
  1. EXTRA STRENGTH TYLENOL [Suspect]
     Indication: DRUG HYPERSENSITIVITY
     Dosage: 500 MG 2 EVERY 4 TO 6 HOURS
     Dates: start: 20071001, end: 20080301
  2. AVELOX [Suspect]

REACTIONS (8)
  - CHEST PAIN [None]
  - DIZZINESS [None]
  - INFLUENZA LIKE ILLNESS [None]
  - MUSCLE TIGHTNESS [None]
  - NAUSEA [None]
  - PALPITATIONS [None]
  - POISONING [None]
  - UNEVALUABLE EVENT [None]
